FAERS Safety Report 8557270-8 (Version None)
Quarter: 2012Q3

REPORT INFORMATION
  Report Type: 
  Country: None (occurrence: None)
  Receive Date: 20120801
  Receipt Date: 20120727
  Transmission Date: 20120928
  Serious: Yes (Other)
  Sender: FDA-Public Use
  Company Number: US-ROCHE-787552

PATIENT
  Sex: Male

DRUGS (1)
  1. ACCUTANE [Suspect]
     Indication: PRODUCT USED FOR UNKNOWN INDICATION
     Route: 065

REACTIONS (5)
  - DEPRESSION [None]
  - IRRITABLE BOWEL SYNDROME [None]
  - INFLAMMATORY BOWEL DISEASE [None]
  - SUICIDAL IDEATION [None]
  - INJURY [None]
